FAERS Safety Report 7003605-7 (Version None)
Quarter: 2010Q3

REPORT INFORMATION
  Report Type: 
  Country: None (occurrence: None)
  Receive Date: 20100917
  Receipt Date: 20100908
  Transmission Date: 20110219
  Serious: Yes (Other)
  Sender: FDA-Public Use
  Company Number: AVE_01975_2010

PATIENT
  Sex: Male

DRUGS (9)
  1. CLONIDINE [Suspect]
     Indication: HYPERTENSION
     Dosage: (VIA 1/WEEKLY PATCH)
  2. CLONIDINE [Suspect]
  3. CLONIDINE [Suspect]
  4. CLONIDINE [Suspect]
     Indication: HYPERTENSION
     Dosage: (VIA 1/WEEKLY PATCH)
  5. CLONIDINE [Suspect]
     Indication: HYPERTENSION
     Dosage: (0.2 MG QD, VIA 1/WEEKLY PATCH TRANSDERMAL)
     Route: 062
     Dates: start: 20100901
  6. METRONIDAZOLE [Concomitant]
  7. CLOBETASOL PROPIONATE [Concomitant]
  8. TRIDERMA [Concomitant]
  9. LODOL-LODOLUM [Concomitant]

REACTIONS (7)
  - ASTHENOPIA [None]
  - BLOOD PRESSURE INADEQUATELY CONTROLLED [None]
  - BLOOD PRESSURE INCREASED [None]
  - DIZZINESS [None]
  - DRUG INEFFECTIVE [None]
  - HEADACHE [None]
  - VISION BLURRED [None]
